FAERS Safety Report 18032798 (Version 10)
Quarter: 2020Q3

REPORT INFORMATION
  Report Type: Report from Study
  Country: CN (occurrence: CN)
  Receive Date: 20200716
  Receipt Date: 20200924
  Transmission Date: 20201103
  Serious: Yes (Death, Hospitalization)
  Sender: FDA-Public Use
  Company Number: CN-ASTELLAS-2020US023484

PATIENT
  Age: 52 Year
  Sex: Female
  Weight: 55 kg

DRUGS (34)
  1. HYDROXYCARBAMIDE [Concomitant]
     Active Substance: HYDROXYUREA
     Indication: WHITE BLOOD CELL COUNT INCREASED
     Route: 048
     Dates: start: 20200602, end: 20200607
  2. HYDROXYCARBAMIDE [Concomitant]
     Active Substance: HYDROXYUREA
     Route: 048
     Dates: start: 20200809, end: 20200809
  3. SODIUM BICARBONATE. [Concomitant]
     Active Substance: SODIUM BICARBONATE
     Indication: BLOOD ALKALINISATION THERAPY
     Route: 048
     Dates: start: 20200604, end: 20200607
  4. RED CELL SUSPENSION [Concomitant]
     Indication: RED BLOOD CELL COUNT DECREASED
     Dosage: 2 UNITS, ONCE
     Route: 042
     Dates: start: 20200611, end: 20200611
  5. FUROSEMIDE. [Concomitant]
     Active Substance: FUROSEMIDE
     Route: 042
     Dates: start: 20200713, end: 20200713
  6. CETYLPYRIDINIUM CHLORIDE. [Concomitant]
     Active Substance: CETYLPYRIDINIUM CHLORIDE
     Indication: DENTAL DISORDER PROPHYLAXIS
     Dosage: THE RIGHT AMOUNT, ONCE DAILY (GARGLE)
     Route: 050
     Dates: start: 20200604, end: 20200605
  7. CEFDINIR. [Concomitant]
     Active Substance: CEFDINIR
     Indication: ANTI-INFECTIVE THERAPY
     Dosage: 0.1 G, ONCE DAILY
     Route: 048
     Dates: start: 20200604, end: 20200607
  8. RED CELL SUSPENSION [Concomitant]
     Indication: ANAEMIA
     Dosage: 2 UNITS ONCE
     Route: 042
     Dates: start: 20200618, end: 20200618
  9. RECOMBINANT HUMAN GRANULOCYTE/MACROPHAGE COLONY?STIMULATING FACTOR [Concomitant]
     Indication: LEUKOPENIA
     Dosage: 150 ?G, ONCE DAILY (ROUTE: H)
     Route: 050
     Dates: start: 20200618, end: 20200705
  10. FUROSEMIDE. [Concomitant]
     Active Substance: FUROSEMIDE
     Route: 048
     Dates: start: 20200812
  11. FUROSEMIDE. [Concomitant]
     Active Substance: FUROSEMIDE
     Indication: POLYURIA
     Route: 042
     Dates: start: 20200602, end: 20200604
  12. FUROSEMIDE. [Concomitant]
     Active Substance: FUROSEMIDE
     Route: 042
     Dates: start: 20200710, end: 20200712
  13. HYDROXYCARBAMIDE [Concomitant]
     Active Substance: HYDROXYUREA
     Indication: LEUKOCYTOSIS
     Route: 048
     Dates: start: 20200720, end: 20200729
  14. SODIUM BICARBONATE. [Concomitant]
     Active Substance: SODIUM BICARBONATE
     Route: 048
     Dates: start: 20200802, end: 20200805
  15. VITAMIN C [Concomitant]
     Active Substance: ASCORBIC ACID
     Indication: VITAMIN SUPPLEMENTATION
     Dosage: 2 GRAIN, THRICE DAILY
     Route: 048
     Dates: start: 20200511, end: 20200704
  16. ASP2215 [Suspect]
     Active Substance: GILTERITINIB
     Route: 048
     Dates: start: 20200805, end: 20200805
  17. FUROSEMIDE. [Concomitant]
     Active Substance: FUROSEMIDE
     Route: 042
     Dates: start: 20200716, end: 20200724
  18. CETYLPYRIDINIUM CHLORIDE. [Concomitant]
     Active Substance: CETYLPYRIDINIUM CHLORIDE
     Dosage: THE RIGHT AMOUNT, THRICE DAILY (GARGLE)
     Route: 050
     Dates: start: 20200618, end: 20200705
  19. SODIUM BICARBONATE. [Concomitant]
     Active Substance: SODIUM BICARBONATE
     Route: 048
     Dates: start: 20200710, end: 20200715
  20. ASP2215 [Suspect]
     Active Substance: GILTERITINIB
     Indication: ACUTE MYELOID LEUKAEMIA
     Route: 048
     Dates: start: 20200612, end: 20200707
  21. GLUCOSE AND SODIUM CHLORIDE [Concomitant]
     Active Substance: DEXTROSE\SODIUM CHLORIDE
     Indication: FLUID REPLACEMENT
     Route: 041
     Dates: start: 20200602, end: 20200604
  22. SODIUM BICARBONATE. [Concomitant]
     Active Substance: SODIUM BICARBONATE
     Route: 048
     Dates: start: 20200809, end: 20200809
  23. FUROSEMIDE. [Concomitant]
     Active Substance: FUROSEMIDE
     Indication: POLYURIA
     Route: 048
     Dates: start: 20200629, end: 20200706
  24. HYDROXYCARBAMIDE [Concomitant]
     Active Substance: HYDROXYUREA
     Route: 048
     Dates: start: 20200810
  25. RED CELL SUSPENSION [Concomitant]
     Dosage: 2 UNIT, ONCE (ROUTE: INTO)
     Route: 050
     Dates: start: 20200705, end: 20200705
  26. ASP2215 [Suspect]
     Active Substance: GILTERITINIB
     Route: 048
     Dates: start: 20200820, end: 20200820
  27. CEFOPERAZONE SODIUM AND SULBACTAM SODIUM [Concomitant]
     Active Substance: CEFOPERAZONE SODIUM\SULBACTAM SODIUM
     Indication: ANTI-INFECTIVE THERAPY
     Route: 041
     Dates: start: 20200531, end: 20200604
  28. SODIUM BICARBONATE. [Concomitant]
     Active Substance: SODIUM BICARBONATE
     Indication: BLOOD ALKALINISATION THERAPY
     Route: 041
     Dates: start: 20200602, end: 20200604
  29. CEFDINIR. [Concomitant]
     Active Substance: CEFDINIR
     Dosage: 0.1 G, THRICE DAILY
     Route: 048
     Dates: start: 20200812
  30. FOLIC ACID. [Concomitant]
     Active Substance: FOLIC ACID
     Indication: VITAMIN SUPPLEMENTATION
     Dosage: 2 GRAIN, TWICE DAILY
     Route: 048
     Dates: start: 20200511, end: 20200704
  31. ASP2215 [Suspect]
     Active Substance: GILTERITINIB
     Route: 048
     Dates: start: 20200714, end: 20200730
  32. FUROSEMIDE. [Concomitant]
     Active Substance: FUROSEMIDE
     Route: 042
     Dates: start: 20200708, end: 20200710
  33. CEFDINIR. [Concomitant]
     Active Substance: CEFDINIR
     Dosage: 0.1 G, THRICE DAILY
     Route: 048
     Dates: start: 20200725, end: 20200727
  34. RECOMBINANT HUMAN INTERLEUKIN?11 [Concomitant]
     Active Substance: OPRELVEKIN
     Indication: THROMBOCYTOPENIA
     Dosage: 3 MG, ONCE DAILY; (ROUTE: H)
     Route: 050
     Dates: start: 20200618, end: 20200705

REACTIONS (4)
  - Cardiac failure [Not Recovered/Not Resolved]
  - Anaemia [Not Recovered/Not Resolved]
  - Dyspnoea [Fatal]
  - Pneumonia [Not Recovered/Not Resolved]

NARRATIVE: CASE EVENT DATE: 20200704
